FAERS Safety Report 23275471 (Version 1)
Quarter: 2023Q4

REPORT INFORMATION
  Report Type: Spontaneous
  Country: ES (occurrence: ES)
  Receive Date: 20231208
  Receipt Date: 20231208
  Transmission Date: 20240110
  Serious: Yes (Other)
  Sender: FDA-Public Use
  Company Number: ES-BRISTOL-MYERS SQUIBB COMPANY-2023-174156

PATIENT
  Sex: Male

DRUGS (2)
  1. OPDIVO [Suspect]
     Active Substance: NIVOLUMAB
     Indication: Renal cancer
  2. YERVOY [Suspect]
     Active Substance: IPILIMUMAB
     Indication: Renal cancer

REACTIONS (1)
  - Adrenal disorder [Unknown]
